FAERS Safety Report 10548479 (Version 1)
Quarter: 2014Q4

REPORT INFORMATION
  Report Type: Spontaneous
  Country: US (occurrence: None)
  Receive Date: 20141027
  Receipt Date: 20141027
  Transmission Date: 20150529
  Serious: No
  Sender: FDA-Public Use
  Company Number: None

PATIENT
  Age: 63 Year
  Sex: Male

DRUGS (4)
  1. FUROSEMIDE. [Concomitant]
     Active Substance: FUROSEMIDE
  2. XTANDI [Suspect]
     Active Substance: ENZALUTAMIDE
     Indication: PROSTATE CANCER
     Route: 048
     Dates: start: 20140909, end: 201410
  3. WARFARIN [Concomitant]
     Active Substance: WARFARIN
  4. PREDNISONE. [Concomitant]
     Active Substance: PREDNISONE

REACTIONS (5)
  - Drug ineffective [None]
  - Prostatic specific antigen increased [None]
  - Back pain [None]
  - Decreased appetite [None]
  - Musculoskeletal pain [None]

NARRATIVE: CASE EVENT DATE: 201410
